FAERS Safety Report 4514191-5 (Version None)
Quarter: 2004Q4

REPORT INFORMATION
  Report Type: 
  Country: None (occurrence: None)
  Receive Date: 20041124
  Receipt Date: 20041115
  Transmission Date: 20050328
  Serious: Yes (Hospitalization)
  Sender: FDA-Public Use
  Company Number: 200410403BFR

PATIENT
  Age: 78 Year
  Sex: Female

DRUGS (9)
  1. GLUCOR (ACARBOSE) [Suspect]
     Indication: DIABETES MELLITUS
     Dosage: 150 MG, TOTAL DAILY, ORAL
     Route: 048
     Dates: start: 20040703
  2. CIPROFLOXACIN [Suspect]
     Indication: LUNG DISORDER
     Dosage: 400 MG, TOTAL DAILY, INTRAVENOUS
     Route: 042
     Dates: start: 20040619, end: 20040101
  3. CIPROFLOXACIN HCL [Suspect]
     Indication: LUNG DISORDER
     Dosage: 1000 MG, TOTAL DAILY, ORAL
     Route: 048
     Dates: start: 20040101, end: 20040710
  4. AUGMENTINE [Concomitant]
  5. AMAREL [Concomitant]
  6. FORADIL [Concomitant]
  7. MOPRAL [Concomitant]
  8. LASILIX [Concomitant]
  9. TRIATEC [Concomitant]

REACTIONS (8)
  - ALLERGIC GRANULOMATOUS ANGIITIS [None]
  - ASPERGILLOSIS [None]
  - BLOOD ALKALINE PHOSPHATASE INCREASED [None]
  - DIABETES MELLITUS [None]
  - EOSINOPHILIA [None]
  - GAMMA-GLUTAMYLTRANSFERASE INCREASED [None]
  - INFECTION PARASITIC [None]
  - TUBERCULOSIS [None]
